FAERS Safety Report 25004675 (Version 1)
Quarter: 2025Q1

REPORT INFORMATION
  Report Type: Spontaneous
  Country: US (occurrence: US)
  Receive Date: 20250224
  Receipt Date: 20250224
  Transmission Date: 20250409
  Serious: Yes (Other)
  Sender: PFIZER
  Company Number: US-PFIZER INC-202500039075

PATIENT
  Age: 76 Year
  Sex: Female
  Weight: 68.04 kg

DRUGS (15)
  1. PREMPRO [Suspect]
     Active Substance: ESTROGENS, CONJUGATED\MEDROXYPROGESTERONE ACETATE
     Indication: Hot flush
     Dosage: .45MG/1.5MG ONCE A DAY IN THE MORNING
     Route: 048
     Dates: start: 2005
  2. DAVESOMERAN\ELASOMERAN [Suspect]
     Active Substance: DAVESOMERAN\ELASOMERAN
     Dates: start: 2023, end: 2023
  3. ASPIRIN [Concomitant]
     Active Substance: ASPIRIN
     Indication: Coagulopathy
     Dosage: 81MG IN THE MORNING
     Route: 048
     Dates: start: 20170125
  4. ATORVASTATIN [Concomitant]
     Active Substance: ATORVASTATIN
     Indication: Blood cholesterol
     Dosage: 20MG IN THE EVENING
     Route: 048
     Dates: start: 20170125
  5. CALCIUM [Concomitant]
     Active Substance: CALCIUM
     Indication: Bone disorder
     Dosage: 1200MG PLUS 600 VITAMIN D TWICE A DAY
     Route: 048
     Dates: start: 20170125
  6. CLONAZEPAM [Concomitant]
     Active Substance: CLONAZEPAM
     Dosage: HALF OF .5MG AT NIGHT
     Route: 048
     Dates: start: 20170125
  7. LUTEIN [Concomitant]
     Active Substance: LUTEIN
     Indication: Eye disorder
     Dosage: 20MG IN THE MORNING
     Route: 048
     Dates: start: 20170125
  8. METOPROLOL [Concomitant]
     Active Substance: METOPROLOL
     Indication: Blood pressure measurement
     Dosage: 25MG IN THE MORNING
     Route: 048
     Dates: start: 20170125
  9. LOSARTAN POTASSIUM [Concomitant]
     Active Substance: LOSARTAN POTASSIUM
     Indication: Blood pressure measurement
     Dosage: 25MG IN THE MORNING
     Route: 048
     Dates: start: 20170125
  10. VITAMIN D NOS [Concomitant]
     Active Substance: CHOLECALCIFEROL\ERGOCALCIFEROL
     Indication: Vitamin supplementation
     Dosage: 1000MG ONE A DAY IN THE MORNING
     Route: 048
     Dates: start: 20170125
  11. HEPATITIS A [Concomitant]
     Dates: start: 2024, end: 2024
  12. HEPATITIS B VIRUS VACCINE [Concomitant]
     Active Substance: HEPATITIS B VIRUS VACCINE
     Dates: start: 2025, end: 2025
  13. DIPHTHERIA AND TETANUS TOXOIDS AND PERTUSSIS VACCINE [Concomitant]
     Active Substance: DIPHTHERIA AND TETANUS TOXOIDS AND PERTUSSIS VACCINE
     Dates: start: 2024, end: 2024
  14. POTASSIUM [Concomitant]
     Active Substance: POTASSIUM
  15. FISH OIL [Concomitant]
     Active Substance: FISH OIL
     Indication: Arthritis

REACTIONS (2)
  - Dental operation [Unknown]
  - COVID-19 [Recovering/Resolving]

NARRATIVE: CASE EVENT DATE: 20250122
